FAERS Safety Report 21054973 (Version 1)
Quarter: 2022Q3

REPORT INFORMATION
  Report Type: Spontaneous
  Country: US (occurrence: US)
  Receive Date: 20220707
  Receipt Date: 20220707
  Transmission Date: 20221026
  Serious: Yes (Hospitalization, Other)
  Sender: FDA-Public Use
  Company Number: US-NALPROPION PHARMACEUTICALS INC.-US-2022CUR022090

PATIENT
  Age: 53 Year
  Sex: Female

DRUGS (5)
  1. CONTRAVE [Suspect]
     Active Substance: BUPROPION HYDROCHLORIDE\NALTREXONE HYDROCHLORIDE
     Indication: Weight control
     Dosage: STRENGTH 8/90 MG, UNKNOWN DOSE AND FREQUENCY
     Route: 048
     Dates: start: 20220616, end: 20220628
  2. OXYCODONE AND ACETAMINOPHEN [Concomitant]
     Active Substance: ACETAMINOPHEN\OXYCODONE HYDROCHLORIDE
     Indication: Product used for unknown indication
     Dosage: TAKEN AS NEEDED. PATIENT DID NOT TOOK THIS MEDICATION WHILE ON CONTRAVE
  3. HERBALS\TURMERIC [Concomitant]
     Active Substance: HERBALS\TURMERIC
     Indication: Product used for unknown indication
     Dosage: UNKNOWN
  4. MACUGUARD OCULAR SUPPORT [Concomitant]
     Indication: Product used for unknown indication
     Dosage: UNKNOWN
  5. DIETARY SUPPLEMENT\HERBALS [Concomitant]
     Active Substance: DIETARY SUPPLEMENT\HERBALS
     Indication: Product used for unknown indication
     Dosage: UNKNOWN

REACTIONS (21)
  - Chest discomfort [Unknown]
  - Pain in extremity [Unknown]
  - Electrocardiogram abnormal [Recovered/Resolved]
  - Blood pressure increased [Not Recovered/Not Resolved]
  - Anger [Unknown]
  - Logorrhoea [Unknown]
  - Blood glucose increased [Unknown]
  - Unevaluable event [Unknown]
  - Vision blurred [Unknown]
  - Pollakiuria [Unknown]
  - Mania [Unknown]
  - Headache [Not Recovered/Not Resolved]
  - Agitation [Unknown]
  - Irritability [Unknown]
  - Initial insomnia [Unknown]
  - Hyperhidrosis [Unknown]
  - Hot flush [Unknown]
  - Dry mouth [Unknown]
  - Rash erythematous [Recovered/Resolved]
  - Feeling hot [Unknown]
  - Off label use [Unknown]

NARRATIVE: CASE EVENT DATE: 20220601
